FAERS Safety Report 7896227-7 (Version None)
Quarter: 2011Q4

REPORT INFORMATION
  Report Type: 
  Country: None (occurrence: None)
  Receive Date: 20111102
  Receipt Date: 20111017
  Transmission Date: 20120403
  Serious: Yes (Other)
  Sender: FDA-Public Use
  Company Number: 2011P1009500

PATIENT
  Age: 89 Year
  Sex: Male
  Weight: 70.3075 kg

DRUGS (7)
  1. WARFARIN SODIUM [Suspect]
     Indication: ATRIAL FIBRILLATION
     Dosage: 5 MG;QD;PO : 10 MG;QD;PO : 5 MG;QD;PO
     Route: 048
  2. WARFARIN SODIUM [Suspect]
     Indication: ATRIAL FIBRILLATION
     Dosage: 5 MG;QD;PO : 10 MG;QD;PO : 5 MG;QD;PO
     Route: 048
     Dates: start: 20110725
  3. CALCIUM [Concomitant]
  4. MAGNESIUM [Concomitant]
  5. LOVAZA [Concomitant]
  6. DILTIAZEM HCL [Concomitant]
  7. ISOSORBIDE DINITRATE [Concomitant]

REACTIONS (11)
  - ACCIDENTAL OVERDOSE [None]
  - JOINT SWELLING [None]
  - INSOMNIA [None]
  - ARTHRITIS [None]
  - OEDEMA PERIPHERAL [None]
  - CONTUSION [None]
  - ERYTHEMA [None]
  - INTERNATIONAL NORMALISED RATIO INCREASED [None]
  - AGITATION [None]
  - PAIN IN EXTREMITY [None]
  - HAEMOPTYSIS [None]
